FAERS Safety Report 5416803-0 (Version None)
Quarter: 2007Q3

REPORT INFORMATION
  Report Type: 
  Country: None (occurrence: None)
  Receive Date: 20070816
  Receipt Date: 20070723
  Transmission Date: 20080115
  Serious: Yes (Life-Threatening, Hospitalization, Other)
  Sender: FDA-Public Use
  Company Number: JP-NOVOPROD-255913

PATIENT
  Age: 70 Year
  Sex: Male
  Weight: 62 kg

DRUGS (6)
  1. NOVOSEVEN [Suspect]
     Indication: HAEMOPHILIA A WITH ANTI FACTOR VIII
     Dosage: 7.2 MG, UNK
     Dates: start: 20050928, end: 20050928
  2. NOVOSEVEN [Suspect]
     Dosage: UNK MG, UNK
     Dates: start: 20050930, end: 20050930
  3. DICLOFENAC SODIUM [Concomitant]
     Indication: ARTHRALGIA
     Dosage: 37.5 MG
     Route: 048
     Dates: start: 20050122
  4. LIPITOR [Concomitant]
     Indication: HYPERLIPIDAEMIA
     Dosage: 10 MG
     Route: 048
     Dates: start: 20050122
  5. NORVASC [Concomitant]
     Indication: HYPERTENSION
     Dosage: 2.5 MG, QD
     Route: 048
     Dates: start: 20050122
  6. CONFACT 8 [Concomitant]
     Indication: HAEMOPHILIA A WITH ANTI FACTOR VIII

REACTIONS (4)
  - CHOLELITHIASIS [None]
  - CONDITION AGGRAVATED [None]
  - DISSEMINATED INTRAVASCULAR COAGULATION [None]
  - PANCREATITIS [None]
